FAERS Safety Report 4679144-5 (Version None)
Quarter: 2005Q2

REPORT INFORMATION
  Report Type: 
  Country: None (occurrence: None)
  Receive Date: 20050527
  Receipt Date: 20050302
  Transmission Date: 20051028
  Serious: Yes (Other)
  Sender: FDA-Public Use
  Company Number: S05-USA-01147-01

PATIENT
  Age: 55 Year
  Sex: Male

DRUGS (5)
  1. CAMPRAL [Suspect]
     Indication: ALCOHOLISM
     Dosage: 666 MG TID PO
     Route: 048
     Dates: start: 20050216, end: 20050201
  2. RISPERIDONE [Concomitant]
  3. TRAZODONE [Concomitant]
  4. ATIVAN [Concomitant]
  5. EFFEXOR [Concomitant]

REACTIONS (2)
  - HAEMOGLOBIN DECREASED [None]
  - VOMITING [None]
